FAERS Safety Report 7414440-X (Version None)
Quarter: 2011Q2

REPORT INFORMATION
  Report Type: 
  Country: None (occurrence: None)
  Receive Date: 20110414
  Receipt Date: 20101021
  Transmission Date: 20111010
  Serious: Yes (Other)
  Sender: FDA-Public Use
  Company Number: US-BAYER-201025155NA

PATIENT
  Sex: Female

DRUGS (4)
  1. YAZ [Suspect]
     Indication: OVARIAN CYST
  2. YAZ [Suspect]
     Indication: HIDRADENITIS
  3. YAZ [Suspect]
     Indication: BLOOD TESTOSTERONE DECREASED
     Dosage: UNK
     Route: 048
     Dates: start: 20070201
  4. LISINOPRIL [Concomitant]

REACTIONS (1)
  - SPLENIC VEIN THROMBOSIS [None]
